FAERS Safety Report 17022260 (Version 1)
Quarter: 2019Q4

REPORT INFORMATION
  Report Type: Report from Study
  Country: FI (occurrence: FI)
  Receive Date: 20191112
  Receipt Date: 20191112
  Transmission Date: 20200122
  Serious: Yes (Hospitalization, Other)
  Sender: FDA-Public Use
  Company Number: FI-MYLANLABS-2019M1107070

PATIENT
  Age: 52 Year
  Sex: Female
  Weight: 96 kg

DRUGS (18)
  1. EVEROLIMUS. [Suspect]
     Active Substance: EVEROLIMUS
     Indication: METASTATIC RENAL CELL CARCINOMA
     Dosage: 5 MILLIGRAM, QD
     Route: 048
     Dates: start: 20171205, end: 20180115
  2. EVEROLIMUS. [Suspect]
     Active Substance: EVEROLIMUS
     Dosage: 2.5 MILLIGRAM, QD
     Route: 048
     Dates: start: 20180117, end: 20180131
  3. EVEROLIMUS. [Suspect]
     Active Substance: EVEROLIMUS
     Dosage: 2.5 MILLIGRAM, QD
     Route: 048
     Dates: start: 20180504, end: 20180507
  4. LANTUS [Concomitant]
     Active Substance: INSULIN GLARGINE
     Indication: PRODUCT USED FOR UNKNOWN INDICATION
     Dosage: UNK
     Route: 065
  5. ATORVASTATIN [Concomitant]
     Active Substance: ATORVASTATIN
     Indication: PRODUCT USED FOR UNKNOWN INDICATION
     Dosage: UNK
     Route: 065
  6. CANDESARTAN. [Concomitant]
     Active Substance: CANDESARTAN
     Indication: PRODUCT USED FOR UNKNOWN INDICATION
     Dosage: UNK
     Route: 065
  7. EVEROLIMUS. [Suspect]
     Active Substance: EVEROLIMUS
     Dosage: 2.5 MG, (5 MG, 1 IN 2 DAY)
     Route: 048
     Dates: start: 20180215, end: 20180505
  8. LENVATINIB [Suspect]
     Active Substance: LENVATINIB
     Dosage: 18 MG OR 14 MG
     Route: 048
     Dates: start: 20171205, end: 20180131
  9. OXYCONTIN [Concomitant]
     Active Substance: OXYCODONE HYDROCHLORIDE
     Indication: PRODUCT USED FOR UNKNOWN INDICATION
     Dosage: UNK
     Route: 065
  10. THYROXIN [Concomitant]
     Active Substance: LEVOTHYROXINE
     Indication: PRODUCT USED FOR UNKNOWN INDICATION
     Dosage: UNK
     Route: 065
  11. HYDROCHLOROTHIAZID [Concomitant]
     Active Substance: HYDROCHLOROTHIAZIDE
     Indication: PRODUCT USED FOR UNKNOWN INDICATION
     Dosage: UNK
     Route: 065
  12. KALCIPOS-D [Concomitant]
     Active Substance: CALCIUM CARBONATE\CHOLECALCIFEROL
     Indication: PRODUCT USED FOR UNKNOWN INDICATION
     Dosage: UNK
     Route: 065
  13. LENVATINIB [Suspect]
     Active Substance: LENVATINIB
     Indication: METASTATIC RENAL CELL CARCINOMA
     Dosage: 1 DF, QD (DOWN TITRATION)
     Route: 048
     Dates: start: 20180215, end: 20180328
  14. LENVATINIB [Suspect]
     Active Substance: LENVATINIB
     Dosage: 1 DF (18 MG OR 14 MG), QD
     Route: 048
     Dates: start: 20180507, end: 20180507
  15. LENVATINIB [Suspect]
     Active Substance: LENVATINIB
     Dosage: 1 DOSAGE FORM, QD (UP TITRATION DUE TO AN ERROR IN THE SYSTEM DISPENSING THE BLINDED DOSE)
     Route: 048
     Dates: start: 20180329, end: 20180505
  16. DYMISTA [Concomitant]
     Active Substance: AZELASTINE HYDROCHLORIDE\FLUTICASONE PROPIONATE
     Indication: PRODUCT USED FOR UNKNOWN INDICATION
     Dosage: UNK
     Route: 065
  17. HYPOLOC [Concomitant]
     Indication: PRODUCT USED FOR UNKNOWN INDICATION
     Dosage: UNK
     Route: 065
  18. BEZALIP [Concomitant]
     Active Substance: BEZAFIBRATE
     Indication: PRODUCT USED FOR UNKNOWN INDICATION
     Dosage: UNK
     Route: 065

REACTIONS (5)
  - Diarrhoea [Recovered/Resolved]
  - Vomiting [Unknown]
  - Pyrexia [Recovered/Resolved]
  - Drug titration error [Recovered/Resolved]
  - Pneumothorax spontaneous [Unknown]

NARRATIVE: CASE EVENT DATE: 20180131
